FAERS Safety Report 12520195 (Version 1)
Quarter: 2016Q3

REPORT INFORMATION
  Report Type: Spontaneous
  Country: BE (occurrence: BE)
  Receive Date: 20160701
  Receipt Date: 20160701
  Transmission Date: 20161109
  Serious: Yes (Other)
  Sender: FDA-Public Use
  Company Number: BE-ABBVIE-16K-013-1661280-00

PATIENT
  Age: 27 Year
  Sex: Female

DRUGS (1)
  1. HUMIRA [Suspect]
     Active Substance: ADALIMUMAB
     Indication: PSORIASIS
     Route: 058
     Dates: start: 2011, end: 201605

REACTIONS (4)
  - Sinus operation [Recovered/Resolved]
  - Stomatitis [Unknown]
  - Nasal septum deviation [Recovered/Resolved]
  - Oral lichen planus [Unknown]

NARRATIVE: CASE EVENT DATE: 20130212
